FAERS Safety Report 4874176-6 (Version None)
Quarter: 2005Q4

REPORT INFORMATION
  Report Type: 
  Country: None (occurrence: None)
  Receive Date: 20051201
  Receipt Date: 20050808
  Transmission Date: 20060501
  Serious: No
  Sender: FDA-Public Use
  Company Number: 2005PV000987

PATIENT
  Age: 58 Year
  Sex: Male
  Weight: 154.223 kg

DRUGS (3)
  1. BYETTA [Suspect]
     Indication: DIABETES MELLITUS NON-INSULIN-DEPENDENT
     Dosage: 5  MCG; BID; SC
     Route: 058
     Dates: start: 20050725
  2. K-DUR 10 [Concomitant]
  3. ENALAPRIL [Concomitant]

REACTIONS (3)
  - DECREASED APPETITE [None]
  - POLYDIPSIA [None]
  - WEIGHT DECREASED [None]
